FAERS Safety Report 7179273-0 (Version None)
Quarter: 2010Q4

REPORT INFORMATION
  Report Type: 
  Country: None (occurrence: None)
  Receive Date: 20101221
  Receipt Date: 20101210
  Transmission Date: 20110411
  Serious: Yes (Other)
  Sender: FDA-Public Use
  Company Number: NL-JNJFOC-20101203082

PATIENT
  Sex: Male

DRUGS (3)
  1. ZALDIAR [Suspect]
     Indication: PAIN
     Route: 048
  2. SELOKEEN [Concomitant]
  3. OXAZEPAM [Concomitant]

REACTIONS (3)
  - BENIGN PROSTATIC HYPERPLASIA [None]
  - NOCTURIA [None]
  - POLYURIA [None]
